FAERS Safety Report 4416077-3 (Version None)
Quarter: 2004Q3

REPORT INFORMATION
  Report Type: 
  Country: None (occurrence: None)
  Receive Date: 20040730
  Receipt Date: 20040719
  Transmission Date: 20050211
  Serious: Yes (Death, Life-Threatening, Hospitalization)
  Sender: FDA-Public Use
  Company Number: 2004043218

PATIENT
  Age: 71 Year
  Sex: Male
  Weight: 46.5 kg

DRUGS (14)
  1. VFEND [Suspect]
     Indication: CANDIDA SEPSIS
     Dosage: 600 MG (300 MG, 2 IN 1)
     Dates: start: 20040613, end: 20040614
  2. CEFEPIME (CEFEPIME) [Concomitant]
  3. CIPROFLOXACIN [Concomitant]
  4. DIGOXIN [Concomitant]
  5. FAMOTIDINE [Concomitant]
  6. FUROSEMIDE [Concomitant]
  7. GRANULOCYTE COLONY STIMULATING FACTOR (GRANULOCYTE COLONY STIMULATING [Concomitant]
  8. CLOBETASOL (CLOBETASOL) [Concomitant]
  9. DIPHENHYDRAMINE HCL [Concomitant]
  10. HALOPERIDOL [Concomitant]
  11. NYSTATIN [Concomitant]
  12. ANTINEOPLSTIC AGENTS (ANTINEOPLASTIC AGENTS) [Concomitant]
  13. TOTAL PARENTERAL NUTRITION (TOTAL PARENTERAL NUTRITION) [Concomitant]
  14. METRONIDAZOLE [Concomitant]

REACTIONS (28)
  - ALANINE AMINOTRANSFERASE INCREASED [None]
  - ALBUMIN GLOBULIN RATIO DECREASED [None]
  - ASPARTATE AMINOTRANSFERASE INCREASED [None]
  - BLOOD ALBUMIN DECREASED [None]
  - BLOOD ALKALINE PHOSPHATASE INCREASED [None]
  - BLOOD CHLORIDE INCREASED [None]
  - BLOOD CREATININE INCREASED [None]
  - BLOOD GLUCOSE INCREASED [None]
  - BLOOD MAGNESIUM DECREASED [None]
  - BLOOD POTASSIUM DECREASED [None]
  - BLOOD SODIUM INCREASED [None]
  - BLOOD UREA INCREASED [None]
  - CARDIAC ARREST [None]
  - CARDIO-RESPIRATORY ARREST [None]
  - CONDITION AGGRAVATED [None]
  - CONVULSION [None]
  - CREATINE PHOSPHOKINASE DECREASED [None]
  - HEART RATE DECREASED [None]
  - PANCYTOPENIA [None]
  - POIKILOCYTOSIS [None]
  - PROTEIN TOTAL DECREASED [None]
  - RED BLOOD CELL TARGET CELLS PRESENT [None]
  - RED CELL DISTRIBUTION WIDTH INCREASED [None]
  - RESPIRATORY ARREST [None]
  - TORSADE DE POINTES [None]
  - VENTRICULAR EXTRASYSTOLES [None]
  - VENTRICULAR FIBRILLATION [None]
  - VENTRICULAR TACHYCARDIA [None]
